FAERS Safety Report 12378183 (Version 5)
Quarter: 2016Q2

REPORT INFORMATION
  Report Type: Report from Study
  Country: US (occurrence: US)
  Receive Date: 20160517
  Receipt Date: 20160616
  Transmission Date: 20160815
  Serious: Yes (Hospitalization, Other)
  Sender: FDA-Public Use
  Company Number: US-JNJFOC-20160506520

PATIENT
  Age: 63 Year
  Sex: Female
  Weight: 81.65 kg

DRUGS (8)
  1. SIMPONI [Suspect]
     Active Substance: GOLIMUMAB
     Indication: UVEITIS
     Dosage: STOPPED IN NOV-2015 OR DEC-2015.
     Route: 058
     Dates: start: 2010, end: 2015
  2. PLAQUENIL [Concomitant]
     Active Substance: HYDROXYCHLOROQUINE SULFATE
     Route: 065
  3. SIMPONI [Suspect]
     Active Substance: GOLIMUMAB
     Indication: UVEITIS
     Route: 058
     Dates: start: 201601
  4. SIMPONI [Suspect]
     Active Substance: GOLIMUMAB
     Indication: PSORIATIC ARTHROPATHY
     Dosage: STOPPED IN NOV-2015 OR DEC-2015.
     Route: 058
     Dates: start: 2010, end: 2015
  5. SULINDAC. [Concomitant]
     Active Substance: SULINDAC
     Route: 065
  6. FOLIC ACID. [Concomitant]
     Active Substance: FOLIC ACID
     Route: 065
  7. SIMPONI [Suspect]
     Active Substance: GOLIMUMAB
     Indication: PSORIATIC ARTHROPATHY
     Route: 058
     Dates: start: 201601
  8. METHOTREXATE [Concomitant]
     Active Substance: METHOTREXATE
     Route: 065

REACTIONS (11)
  - Joint swelling [Not Recovered/Not Resolved]
  - Accidental exposure to product [Recovered/Resolved]
  - Iritis [Unknown]
  - Device malfunction [Unknown]
  - Weight increased [Not Recovered/Not Resolved]
  - Uterine cancer [Unknown]
  - Drug dose omission [Not Recovered/Not Resolved]
  - Product use issue [Unknown]
  - Nausea [Not Recovered/Not Resolved]
  - Off label use [Unknown]
  - Glaucoma [Unknown]

NARRATIVE: CASE EVENT DATE: 201412
